FAERS Safety Report 21217442 (Version 1)
Quarter: 2022Q3

REPORT INFORMATION
  Report Type: Spontaneous
  Country: KR (occurrence: KR)
  Receive Date: 20220816
  Receipt Date: 20220816
  Transmission Date: 20221027
  Serious: Yes (Death)
  Sender: FDA-Public Use
  Company Number: KR-FreseniusKabi-FK202211113

PATIENT
  Age: 5 Decade
  Sex: Male

DRUGS (1)
  1. PROPOFOL [Suspect]
     Active Substance: PROPOFOL
     Indication: Sedative therapy
     Dosage: AFTER ADMINISTERING 10ML, ADD 2ML EACH TWICE (10 + 2 + 2)
     Route: 042
     Dates: start: 20220726, end: 20220726

REACTIONS (1)
  - Death [Fatal]

NARRATIVE: CASE EVENT DATE: 20220726
